FAERS Safety Report 22182711 (Version 5)
Quarter: 2023Q2

REPORT INFORMATION
  Report Type: Report from Study
  Country: GB (occurrence: GB)
  Receive Date: 20230406
  Receipt Date: 20230522
  Transmission Date: 20230722
  Serious: Yes (Death, Life-Threatening, Hospitalization)
  Sender: FDA-Public Use
  Company Number: GB-GSK-GB2023049637

PATIENT

DRUGS (19)
  1. BELANTAMAB MAFODOTIN [Suspect]
     Active Substance: BELANTAMAB MAFODOTIN
     Indication: Plasma cell myeloma
     Dosage: 100 MG, CYC
     Route: 042
     Dates: start: 20210810, end: 20210831
  2. BELANTAMAB MAFODOTIN [Suspect]
     Active Substance: BELANTAMAB MAFODOTIN
     Dosage: 70 MG, CYC
     Route: 042
     Dates: start: 20220104, end: 20220125
  3. BELANTAMAB MAFODOTIN [Suspect]
     Active Substance: BELANTAMAB MAFODOTIN
     Dosage: 70 MG, CYC
     Route: 042
     Dates: start: 20220322, end: 20220322
  4. BELANTAMAB MAFODOTIN [Suspect]
     Active Substance: BELANTAMAB MAFODOTIN
     Dosage: 70 MG, CYC
     Route: 042
     Dates: start: 20220614, end: 20220713
  5. BELANTAMAB MAFODOTIN [Suspect]
     Active Substance: BELANTAMAB MAFODOTIN
     Dosage: 70 MG, CYC
     Route: 042
     Dates: start: 20221123, end: 20230118
  6. BELANTAMAB MAFODOTIN [Suspect]
     Active Substance: BELANTAMAB MAFODOTIN
     Dosage: 70 MG, CYC
     Route: 042
     Dates: start: 20230316, end: 20230316
  7. BORTEZOMIB [Suspect]
     Active Substance: BORTEZOMIB
     Indication: Plasma cell myeloma
     Dosage: 2.25 MG/ML, CYC
     Route: 058
     Dates: start: 20210810, end: 20220113
  8. LENALIDOMIDE [Suspect]
     Active Substance: LENALIDOMIDE
     Indication: Plasma cell myeloma
     Dosage: 1 DF, CYC
     Route: 048
     Dates: start: 20210810, end: 20220713
  9. LENALIDOMIDE [Suspect]
     Active Substance: LENALIDOMIDE
     Dosage: 2 DF, CYC
     Route: 048
     Dates: start: 20220817, end: 20221123
  10. DEXAMETHASONE [Suspect]
     Active Substance: DEXAMETHASONE
     Indication: Plasma cell myeloma
     Dosage: 20 MG, CYC
     Route: 048
     Dates: start: 20210810, end: 20220511
  11. DEXAMETHASONE [Suspect]
     Active Substance: DEXAMETHASONE
     Dosage: 10 MG, CYC
     Route: 048
     Dates: start: 20220518, end: 20230308
  12. OXYCODONE [Concomitant]
     Active Substance: OXYCODONE
     Indication: Product used for unknown indication
     Dosage: 2.5 MG, PRN
     Route: 058
     Dates: start: 20230405, end: 20230405
  13. MORPHINE [Concomitant]
     Active Substance: MORPHINE
     Indication: Product used for unknown indication
     Dosage: 2.5 MG, PRN
     Route: 058
     Dates: start: 20230404, end: 20230406
  14. MIDAZOLAM [Concomitant]
     Active Substance: MIDAZOLAM
     Indication: Product used for unknown indication
     Dosage: 2.5 MG, PRN
     Route: 058
     Dates: start: 20230404, end: 20230405
  15. OMEPRAZOLE [Concomitant]
     Active Substance: OMEPRAZOLE
     Indication: Prophylaxis
     Dosage: 40 MG, QD
     Route: 042
     Dates: start: 20230405, end: 20230406
  16. LEVETIRACETAM [Concomitant]
     Active Substance: LEVETIRACETAM
     Indication: Seizure prophylaxis
     Dosage: 2000 MG, SINGLE
     Route: 042
     Dates: start: 20230408, end: 20230408
  17. LEVETIRACETAM [Concomitant]
     Active Substance: LEVETIRACETAM
     Dosage: 250 MG, SINGLE
     Route: 042
     Dates: start: 20230409, end: 20230409
  18. DALTEPARIN [Concomitant]
     Active Substance: DALTEPARIN
     Indication: Prophylaxis
     Dosage: 1000 IU, SINGLE
     Route: 058
     Dates: start: 20230404, end: 20230404
  19. DALTEPARIN [Concomitant]
     Active Substance: DALTEPARIN
     Dosage: 5000 IU, SINGLE
     Route: 058
     Dates: start: 20230405, end: 20230405

REACTIONS (3)
  - Pneumonia [Fatal]
  - Cerebrovascular accident [Not Recovered/Not Resolved]
  - Cardiac failure [Not Recovered/Not Resolved]

NARRATIVE: CASE EVENT DATE: 20230403
